FAERS Safety Report 5711937-5 (Version None)
Quarter: 2008Q2

REPORT INFORMATION
  Report Type: 
  Country: None (occurrence: None)
  Receive Date: 20080421
  Receipt Date: 20080409
  Transmission Date: 20081010
  Serious: Yes (Other)
  Sender: FDA-Public Use
  Company Number: US-ELI_LILLY_AND_COMPANY-US200804002339

PATIENT
  Age: 5 Year
  Sex: Male

DRUGS (1)
  1. STRATTERA [Suspect]
     Indication: ATTENTION DEFICIT/HYPERACTIVITY DISORDER
     Dosage: 18 MG, DAILY (1/D)
     Route: 048
     Dates: start: 20080403

REACTIONS (7)
  - ACTIVITIES OF DAILY LIVING IMPAIRED [None]
  - EYE DISORDER [None]
  - FATIGUE [None]
  - PERSONALITY CHANGE [None]
  - STARING [None]
  - TREMOR [None]
  - UNRESPONSIVE TO STIMULI [None]
